FAERS Safety Report 23285757 (Version 2)
Quarter: 2024Q1

REPORT INFORMATION
  Report Type: Report from Study
  Country: IT (occurrence: IT)
  Receive Date: 20231212
  Receipt Date: 20240112
  Transmission Date: 20240410
  Serious: Yes (Other)
  Sender: FDA-Public Use
  Company Number: IT-002147023-NVSC2023IT237248

PATIENT
  Age: 18 Year
  Sex: Male
  Weight: 100 kg

DRUGS (6)
  1. MEKINIST [Suspect]
     Active Substance: TRAMETINIB DIMETHYL SULFOXIDE
     Indication: Astrocytoma
     Dosage: 2 MG, QD
     Route: 048
     Dates: start: 20221203, end: 20231102
  2. MEKINIST [Suspect]
     Active Substance: TRAMETINIB DIMETHYL SULFOXIDE
     Dosage: 1.5 MG, QD
     Route: 065
  3. MEKINIST [Suspect]
     Active Substance: TRAMETINIB DIMETHYL SULFOXIDE
     Dosage: 1.5 MG, QD
     Route: 048
     Dates: start: 20231214
  4. NIFEDIPINE [Concomitant]
     Active Substance: NIFEDIPINE
     Indication: Hypertension
     Dosage: 10 MG, QD
     Route: 065
  5. MOISTURIZING ALL CLEAR [Concomitant]
     Indication: Skin toxicity
     Dosage: UNK, PRN (AS NEEDED)
     Route: 065
     Dates: start: 20231120
  6. ERYTHROMYCIN [Concomitant]
     Active Substance: ERYTHROMYCIN
     Indication: Skin toxicity
     Dosage: UNK, PRN (AS NEEDED)
     Route: 065
     Dates: start: 20220905, end: 20231102

REACTIONS (5)
  - Ventricular hypokinesia [Unknown]
  - Diastolic dysfunction [Recovered/Resolved]
  - Ejection fraction decreased [Recovered/Resolved]
  - Rash [Not Recovered/Not Resolved]
  - Eczema [Unknown]

NARRATIVE: CASE EVENT DATE: 20221220
